FAERS Safety Report 14979359 (Version 1)
Quarter: 2018Q2

REPORT INFORMATION
  Report Type: Spontaneous
  Country: DE (occurrence: DE)
  Receive Date: 20180606
  Receipt Date: 20180606
  Transmission Date: 20180711
  Serious: Yes (Hospitalization)
  Sender: FDA-Public Use
  Company Number: DE-TEVA-2018-DE-902858

PATIENT
  Age: 92 Year
  Sex: Female

DRUGS (4)
  1. TELMISARTAN. [Suspect]
     Active Substance: TELMISARTAN
     Dosage: 40 MILLIGRAM DAILY;
     Route: 065
  2. LACTULOSE. [Suspect]
     Active Substance: LACTULOSE
     Route: 065
  3. RISPERIDON [Suspect]
     Active Substance: RISPERIDONE
     Route: 065
  4. OMEPRAZOL [Concomitant]
     Active Substance: OMEPRAZOLE
     Dosage: 20 MILLIGRAM DAILY;
     Route: 065

REACTIONS (4)
  - Depressed level of consciousness [Unknown]
  - Aphasia [Unknown]
  - General physical health deterioration [Unknown]
  - Syncope [Unknown]
